FAERS Safety Report 5026635-3 (Version None)
Quarter: 2006Q2

REPORT INFORMATION
  Report Type: 
  Country: None (occurrence: None)
  Receive Date: 20060615
  Receipt Date: 20060605
  Transmission Date: 20061013
  Serious: Yes (Congenital Anomaly)
  Sender: FDA-Public Use
  Company Number: AF-GLAXOSMITHKLINE-A0561884B

PATIENT
  Sex: Female
  Weight: 2.3 kg

DRUGS (8)
  1. WELLBUTRIN XL [Suspect]
     Dates: start: 20050518, end: 20050526
  2. ACYCLOVIR [Suspect]
     Dosage: 400MG CUMULATIVE DOSE
     Dates: start: 20051216
  3. ZYRTEC [Concomitant]
     Dosage: 10MG PER DAY
     Dates: start: 20050701
  4. COMPAZINE [Concomitant]
     Dosage: 10MG PER DAY
     Dates: start: 20050902
  5. METROGEL [Concomitant]
     Dates: start: 20050801
  6. FERROUS SULFATE TAB [Concomitant]
     Dosage: 325MG PER DAY
     Dates: start: 20060103
  7. COLACE [Concomitant]
     Dates: start: 20060103
  8. MOTRIN [Concomitant]
     Dates: start: 20060103

REACTIONS (2)
  - HYPERADRENALISM [None]
  - JAUNDICE [None]
